FAERS Safety Report 8954135 (Version 1)
Quarter: 2012Q4

REPORT INFORMATION
  Report Type: Report from Study
  Country: US (occurrence: US)
  Receive Date: 20121207
  Receipt Date: 20121207
  Transmission Date: 20130627
  Serious: Yes (Hospitalization)
  Sender: FDA-Public Use
  Company Number: US-MYLANLABS-2012S1023791

PATIENT
  Age: 60 Year
  Sex: Female
  Weight: 89.36 kg

DRUGS (15)
  1. PERFOROMIST [Suspect]
     Indication: CHRONIC OBSTRUCTIVE PULMONARY DISEASE
     Route: 055
     Dates: start: 20120830
  2. SPIRIVA [Concomitant]
     Indication: CHRONIC OBSTRUCTIVE PULMONARY DISEASE
     Route: 055
     Dates: start: 20120508
  3. SIMVASTATIN [Concomitant]
     Indication: HYPERLIPIDAEMIA
     Route: 048
     Dates: start: 20120106
  4. HYDROCODONE [Concomitant]
     Indication: PAIN
     Route: 048
     Dates: start: 1990
  5. LISINOPRIL [Concomitant]
     Indication: HYPERTENSION
     Route: 048
     Dates: start: 20120106
  6. CYCLOBENZAPRINE [Concomitant]
     Indication: FIBROMYALGIA
     Route: 048
     Dates: start: 20120106
  7. INDOMETHACIN [Concomitant]
     Indication: OSTEOARTHRITIS
     Route: 048
     Dates: start: 2007
  8. GABAPENTIN [Concomitant]
     Indication: FIBROMYALGIA
     Route: 048
     Dates: start: 20120106
  9. AMITRIPTYLINE [Concomitant]
     Indication: DEPRESSION
     Route: 048
     Dates: start: 20120106
  10. ASPIRIN [Concomitant]
     Indication: CARDIOVASCULAR EVENT PROPHYLAXIS
     Route: 048
     Dates: start: 20120518
  11. SALBUTAMOL [Concomitant]
     Indication: CHRONIC OBSTRUCTIVE PULMONARY DISEASE
     Route: 055
     Dates: start: 20120106
  12. FISH OIL [Concomitant]
     Indication: MEDICAL DIET
     Route: 048
     Dates: start: 2010
  13. SINGULAIR [Concomitant]
     Indication: RHINITIS SEASONAL
     Route: 048
     Dates: start: 1999
  14. VITAMIN D [Concomitant]
     Indication: VITAMIN D DEFICIENCY
     Route: 048
     Dates: start: 20120106
  15. NITROGLYCERIN [Concomitant]
     Indication: CHEST PAIN
     Route: 060
     Dates: start: 20120930

REACTIONS (3)
  - Non-cardiac chest pain [Recovered/Resolved]
  - Ventricular extrasystoles [None]
  - Electrocardiogram ST segment depression [None]
